FAERS Safety Report 8947936 (Version 1)
Quarter: 2012Q4

REPORT INFORMATION
  Report Type: Spontaneous
  Country: US (occurrence: None)
  Receive Date: 20121203
  Receipt Date: 20121203
  Transmission Date: 20130627
  Serious: Yes (Other)
  Sender: FDA-Public Use
  Company Number: None

PATIENT
  Sex: Female
  Weight: 40.82 kg

DRUGS (1)
  1. CHILDREN^S DAYTIME COLD + COUGH, 2 TSP, CVS [Suspect]
     Indication: COLD
     Route: 048
     Dates: start: 20121201, end: 20121201

REACTIONS (4)
  - Swelling face [None]
  - Facial pain [None]
  - Lip pain [None]
  - Lip swelling [None]
